FAERS Safety Report 6149456-7 (Version None)
Quarter: 2009Q2

REPORT INFORMATION
  Report Type: 
  Country: None (occurrence: None)
  Receive Date: 20090409
  Receipt Date: 20090330
  Transmission Date: 20091009
  Serious: Yes (Hospitalization)
  Sender: FDA-Public Use
  Company Number: US-BAYER-200910860BCC

PATIENT
  Age: 59 Year
  Sex: Male
  Weight: 77 kg

DRUGS (6)
  1. ALEVE (CAPLET) [Suspect]
     Indication: PAIN
     Dosage: AS USED: 220 MG  UNIT DOSE: 220 MG
     Dates: start: 20090314, end: 20090317
  2. IBUPROFEN [Concomitant]
     Dosage: UNIT DOSE: 200 MG
  3. FLONASE [Concomitant]
  4. FISH OIL [Concomitant]
  5. MULTI-VITAMIN [Concomitant]
  6. ASCORBIC ACID [Concomitant]

REACTIONS (8)
  - ABDOMINAL DISCOMFORT [None]
  - ABDOMINAL DISTENSION [None]
  - DIZZINESS [None]
  - FEELING COLD [None]
  - GASTRIC ULCER [None]
  - GASTRITIS [None]
  - MELAENA [None]
  - ULCER HAEMORRHAGE [None]
